FAERS Safety Report 4398111-2 (Version None)
Quarter: 2004Q3

REPORT INFORMATION
  Report Type: 
  Country: None (occurrence: None)
  Receive Date: 20040715
  Receipt Date: 20040426
  Transmission Date: 20050211
  Serious: Yes (Hospitalization, Other)
  Sender: FDA-Public Use
  Company Number: PHBS2004JP05684

PATIENT
  Age: 45 Year
  Sex: Female
  Weight: 50 kg

DRUGS (6)
  1. TEGRETOL [Suspect]
     Indication: EPILEPSY
     Dosage: 100 MG, BID
     Route: 048
     Dates: start: 20040212, end: 20040325
  2. FLOMOX [Concomitant]
     Route: 065
  3. BISOLVON [Concomitant]
     Route: 065
  4. ASVERIN [Concomitant]
     Route: 065
  5. MUCOSOLVAN [Concomitant]
     Route: 065
  6. FLUMARIN [Concomitant]
     Indication: PHARYNGITIS
     Dosage: 2 G/DAY
     Route: 042
     Dates: start: 20040326, end: 20040330

REACTIONS (17)
  - ANOREXIA [None]
  - BLOOD ALKALINE PHOSPHATASE INCREASED [None]
  - BLOOD IMMUNOGLOBULIN A DECREASED [None]
  - BLOOD IMMUNOGLOBULIN G DECREASED [None]
  - BLOOD IMMUNOGLOBULIN M DECREASED [None]
  - BLOOD LACTATE DEHYDROGENASE INCREASED [None]
  - C-REACTIVE PROTEIN INCREASED [None]
  - DRUG HYPERSENSITIVITY [None]
  - ERYTHEMA MULTIFORME [None]
  - GAMMA-GLUTAMYLTRANSFERASE INCREASED [None]
  - HYPOGAMMAGLOBULINAEMIA [None]
  - MALAISE [None]
  - PYREXIA [None]
  - RASH GENERALISED [None]
  - SKIN HYPERPIGMENTATION [None]
  - SKIN LESION [None]
  - TOXIC SKIN ERUPTION [None]
